FAERS Safety Report 7436580 (Version 4)
Quarter: 2014Q2

REPORT INFORMATION
  Report Type: Report from Study
  Country: US (occurrence: US)
  Receive Date: 20100625
  Receipt Date: 20140611
  Transmission Date: 20141212
  Serious: Yes (Other)
  Sender: FDA-Public Use
  Company Number: US-PFIZER INC-2009252515

PATIENT
  Age: 46 Year
  Sex: Female
  Weight: 88.44 kg

DRUGS (17)
  1. CELEBREX [Suspect]
     Indication: RHEUMATOID ARTHRITIS
     Dosage: 200 MG, DAILY
     Route: 048
  2. NORVASC [Suspect]
     Dosage: UNK
     Route: 048
  3. NEURONTIN [Suspect]
     Indication: NEUROPATHY PERIPHERAL
     Dosage: UNK
     Route: 048
     Dates: start: 1992
  4. NEURONTIN [Suspect]
     Indication: DIABETIC NEUROPATHY
  5. GLUCOTROL XL [Suspect]
     Indication: DIABETES MELLITUS
     Dosage: 5 MG, DAILY
     Route: 048
  6. PROTONIX [Suspect]
     Dosage: UNK
  7. PRISTIQ [Suspect]
     Dosage: UNK
  8. ASPIRIN [Concomitant]
     Indication: CARDIAC DISORDER
     Dosage: 325 MG, DAILY
     Route: 048
  9. MULTIVITAMINS [Concomitant]
     Dosage: UNK
  10. NOVOLOG MIX 70/30 [Concomitant]
     Indication: DIABETES MELLITUS
     Dosage: UNK
  11. RAMIPRIL [Concomitant]
     Indication: CARDIAC DISORDER
     Dosage: UNK
  12. IMDUR [Concomitant]
     Indication: CARDIAC DISORDER
     Dosage: UNK
  13. COLCHICINE [Concomitant]
     Indication: GOUT
     Dosage: UNK
  14. ALLOPURINOL [Concomitant]
     Indication: GOUT
     Dosage: UNK
  15. LITHIUM [Concomitant]
     Indication: BIPOLAR DISORDER
     Dosage: UNK
  16. ZYBAN [Concomitant]
     Indication: BIPOLAR DISORDER
     Dosage: UNK
  17. LEXAPRO [Concomitant]
     Indication: BIPOLAR DISORDER
     Dosage: UNK

REACTIONS (9)
  - Myocardial infarction [Unknown]
  - Rheumatoid arthritis [Unknown]
  - Back disorder [Unknown]
  - Neuropathy peripheral [Unknown]
  - Fracture [Unknown]
  - Fibromyalgia [Unknown]
  - Hypersensitivity [Unknown]
  - Pain [Unknown]
  - Cataract [Unknown]
